FAERS Safety Report 24953357 (Version 2)
Quarter: 2025Q2

REPORT INFORMATION
  Report Type: Report from Study
  Country: ZA (occurrence: ZA)
  Receive Date: 20250211
  Receipt Date: 20250406
  Transmission Date: 20250717
  Serious: Yes (Hospitalization, Other)
  Sender: ABBVIE
  Company Number: ZA-ABBVIE-6124883

PATIENT
  Age: 74 Year
  Sex: Female

DRUGS (1)
  1. HUMIRA [Suspect]
     Active Substance: ADALIMUMAB
     Indication: Crohn^s disease
     Route: 058
     Dates: start: 20151015, end: 20250205

REACTIONS (10)
  - Cardiac valve disease [Not Recovered/Not Resolved]
  - Stomach mass [Not Recovered/Not Resolved]
  - Pulmonary tuberculosis [Not Recovered/Not Resolved]
  - Renal failure [Not Recovered/Not Resolved]
  - Musculoskeletal disorder [Recovered/Resolved]
  - Hiatus hernia [Not Recovered/Not Resolved]
  - Lung neoplasm malignant [Recovering/Resolving]
  - Heart valve replacement [Not Recovered/Not Resolved]
  - Arthritis [Not Recovered/Not Resolved]
  - Gastric ulcer [Not Recovered/Not Resolved]

NARRATIVE: CASE EVENT DATE: 20250203
